FAERS Safety Report 8612811-7 (Version None)
Quarter: 2012Q3

REPORT INFORMATION
  Report Type: 
  Country: None (occurrence: None)
  Receive Date: 20120822
  Receipt Date: 20110912
  Transmission Date: 20120928
  Serious: No
  Sender: FDA-Public Use
  Company Number: US-ASTRAZENECA-2010SE38444

PATIENT
  Age: 48 Year
  Sex: Female

DRUGS (5)
  1. ARALEN [Concomitant]
  2. PREDNISONE TAB [Concomitant]
  3. CORTISONE ACETATE [Concomitant]
  4. SYMBICORT [Suspect]
     Route: 055
     Dates: start: 20100101
  5. SYMBICORT [Suspect]
     Dosage: 160/4.5 MCG, 1 PUFF BID
     Route: 055

REACTIONS (4)
  - INCORRECT DOSE ADMINISTERED [None]
  - DRUG DOSE OMISSION [None]
  - MALAISE [None]
  - DYSPNOEA [None]
